FAERS Safety Report 4765622-7 (Version None)
Quarter: 2005Q3

REPORT INFORMATION
  Report Type: 
  Country: None (occurrence: None)
  Receive Date: 20050906
  Receipt Date: 20050826
  Transmission Date: 20060218
  Serious: Yes (Death, Hospitalization)
  Sender: FDA-Public Use
  Company Number: 2005120573

PATIENT
  Sex: Male

DRUGS (1)
  1. LIPITOR [Suspect]
     Indication: DYSLIPIDAEMIA
     Dosage: 10 MG (10 MG, 1 IN 1 D), ORAL
     Route: 048
     Dates: start: 20040501, end: 20050501

REACTIONS (5)
  - CARDIOMYOPATHY [None]
  - LUNG DISORDER [None]
  - MULTI-ORGAN FAILURE [None]
  - NEOPLASM PROSTATE [None]
  - SENSORY LOSS [None]
